FAERS Safety Report 22260246 (Version 1)
Quarter: 2023Q2

REPORT INFORMATION
  Report Type: Spontaneous
  Country: US (occurrence: US)
  Receive Date: 20230427
  Receipt Date: 20230427
  Transmission Date: 20230721
  Serious: No
  Sender: FDA-Public Use
  Company Number: US-MYOVANT SCIENCES GMBH-2023MYSCI0300139

PATIENT
  Age: 56 Year
  Sex: Male

DRUGS (16)
  1. ORGOVYX [Suspect]
     Active Substance: RELUGOLIX
     Indication: Prostate cancer
     Dosage: 360 MILLIGRAM, ONE TIME DOSE
     Route: 048
     Dates: start: 20230202, end: 20230202
  2. ORGOVYX [Suspect]
     Active Substance: RELUGOLIX
     Dosage: 120 MILLIGRAM, QD
     Route: 048
     Dates: start: 20230203, end: 20230302
  3. VITAMIN D3 [Concomitant]
     Active Substance: CHOLECALCIFEROL
     Indication: Product used for unknown indication
     Dosage: 50 MILLIGRAM, QD
     Route: 065
     Dates: start: 202302
  4. BETA SITOSTEROL [Concomitant]
     Indication: Prostatomegaly
     Dosage: 1200 MILLIGRAM, QD
     Route: 065
     Dates: start: 202212
  5. ZINK                               /00156501/ [Concomitant]
     Indication: Prostatomegaly
     Dosage: 30 MILLIGRAM, QD
     Route: 065
  6. SAW PALMETTO                       /00833501/ [Concomitant]
     Indication: Prostatomegaly
     Dosage: 595 MILLIGRAM, QD
     Route: 065
     Dates: start: 202301
  7. TEA LEAF [Concomitant]
     Active Substance: TEA LEAF
     Indication: Prostatomegaly
     Dosage: 400 MILLIGRAM, QD
     Route: 065
     Dates: start: 202301
  8. TURMERIC                           /01079602/ [Concomitant]
     Indication: Prostatomegaly
     Dosage: 500 MILLIGRAM, QD
     Route: 065
     Dates: start: 202301
  9. CALCIUM [Concomitant]
     Active Substance: CALCIUM
     Indication: Bone disorder
     Dosage: 500 MILLIGRAM, QD
     Route: 065
     Dates: start: 202302
  10. FISH OIL [Concomitant]
     Active Substance: FISH OIL
     Indication: Prostate cancer
     Dosage: 2000 MILLIGRAM, QD
     Route: 065
     Dates: start: 202301
  11. VITAMINS [Concomitant]
     Active Substance: VITAMINS
     Indication: Product used for unknown indication
     Dosage: UNK UNK, QD
     Route: 065
  12. LISINOPRIL [Concomitant]
     Active Substance: LISINOPRIL
     Indication: Diabetes mellitus
     Dosage: 40 MILLIGRAM, QD
     Route: 065
     Dates: start: 2016
  13. LISINOPRIL [Concomitant]
     Active Substance: LISINOPRIL
     Indication: Blood pressure abnormal
  14. ATORVASTATIN [Concomitant]
     Active Substance: ATORVASTATIN
     Indication: Multiple allergies
     Dosage: 40 MILLIGRAM, QD
     Route: 065
  15. GLIPIZIDE [Concomitant]
     Active Substance: GLIPIZIDE
     Indication: Diabetes mellitus
     Dosage: 5 MILLIGRAM, BID
     Route: 065
     Dates: start: 2016
  16. METFORMIN [Concomitant]
     Active Substance: METFORMIN HYDROCHLORIDE
     Indication: Diabetes mellitus
     Dosage: 1000 MILLIGRAM, BID
     Route: 065
     Dates: start: 2016

REACTIONS (1)
  - Therapy interrupted [Not Recovered/Not Resolved]

NARRATIVE: CASE EVENT DATE: 20230303
